FAERS Safety Report 5068606-7 (Version None)
Quarter: 2006Q3

REPORT INFORMATION
  Report Type: 
  Country: None (occurrence: None)
  Receive Date: 20060802
  Receipt Date: 20051230
  Transmission Date: 20061208
  Serious: No
  Sender: FDA-Public Use
  Company Number: US-BRISTOL-MYERS SQUIBB COMPANY-13233119

PATIENT
  Age: 67 Year
  Sex: Male
  Weight: 86 kg

DRUGS (1)
  1. COUMADIN [Suspect]
     Indication: PULMONARY THROMBOSIS
     Dosage: DOSE = 5 MILLIGRAMS DAILY ALTERNATING WITH 2.5 MILLIGRAMS DAILY.

REACTIONS (4)
  - ANOREXIA [None]
  - CONFUSIONAL STATE [None]
  - NAUSEA [None]
  - SOMNOLENCE [None]
